FAERS Safety Report 16050066 (Version 3)
Quarter: 2019Q1

REPORT INFORMATION
  Report Type: Spontaneous
  Country: CH (occurrence: CH)
  Receive Date: 20190308
  Receipt Date: 20190329
  Transmission Date: 20190418
  Serious: Yes (Hospitalization, Other)
  Sender: FDA-Public Use
  Company Number: CH-ABBVIE-19K-151-2690524-00

PATIENT
  Age: 70 Year
  Sex: Female
  Weight: 50 kg

DRUGS (4)
  1. VENCLYXTO [Suspect]
     Active Substance: VENETOCLAX
     Indication: ACUTE MYELOID LEUKAEMIA
     Dosage: RAMP UP: DOSE DAY 1
     Route: 048
     Dates: start: 20190225, end: 20190225
  2. VENCLYXTO [Suspect]
     Active Substance: VENETOCLAX
     Dosage: RAMP UP: DOSE DAY 2
     Route: 048
     Dates: start: 20190226, end: 20190226
  3. DACOGEN [Concomitant]
     Active Substance: DECITABINE
     Indication: ACUTE MYELOID LEUKAEMIA
     Dosage: 20 MG/M2  D1-5, Q29
     Route: 042
     Dates: start: 20190225
  4. VENCLYXTO [Suspect]
     Active Substance: VENETOCLAX
     Dosage: RAMP UP: DOSE DAY 3
     Route: 048
     Dates: start: 20190227, end: 20190227

REACTIONS (5)
  - Pemphigus [Recovering/Resolving]
  - Oedema peripheral [Unknown]
  - Pallor [Unknown]
  - Off label use [Unknown]
  - Erythema [Unknown]

NARRATIVE: CASE EVENT DATE: 20190227
